FAERS Safety Report 6302334-2 (Version None)
Quarter: 2009Q3

REPORT INFORMATION
  Report Type: 
  Country: None (occurrence: None)
  Receive Date: 20090810
  Receipt Date: 20090731
  Transmission Date: 20100115
  Serious: Yes (Other)
  Sender: FDA-Public Use
  Company Number: CH-BAYER-200830334GPV

PATIENT
  Age: 19 Year
  Sex: Female

DRUGS (2)
  1. YASMIN [Suspect]
     Indication: CONTRACEPTION
     Route: 048
     Dates: end: 20080601
  2. YASMIN [Suspect]
     Route: 048
     Dates: start: 20080701, end: 20081001

REACTIONS (3)
  - COMPLICATION OF DELIVERY [None]
  - FOETAL MONITORING [None]
  - PREGNANCY ON ORAL CONTRACEPTIVE [None]
